FAERS Safety Report 6532059-X (Version None)
Quarter: 2010Q1

REPORT INFORMATION
  Report Type: 
  Country: None (occurrence: None)
  Receive Date: 20100107
  Receipt Date: 20100107
  Transmission Date: 20100710
  Serious: Yes (Disabling)
  Sender: FDA-Public Use
  Company Number: None

PATIENT
  Age: 69 Year
  Sex: Female
  Weight: 85.2762 kg

DRUGS (1)
  1. CUBICIN [Suspect]
     Indication: CELLULITIS
     Dosage: 500MG DAILY IV
     Route: 042
     Dates: start: 20091203, end: 20091219

REACTIONS (2)
  - ASTHENIA [None]
  - BLOOD CREATINE PHOSPHOKINASE INCREASED [None]
